FAERS Safety Report 20117901 (Version 1)
Quarter: 2021Q4

REPORT INFORMATION
  Report Type: Spontaneous
  Country: CA (occurrence: CA)
  Receive Date: 20211126
  Receipt Date: 20211126
  Transmission Date: 20220303
  Serious: Yes (Hospitalization, Other)
  Sender: FDA-Public Use
  Company Number: CA-SA-SAC20211123001484

PATIENT
  Age: 84 Year
  Sex: Female

DRUGS (12)
  1. LEFLUNOMIDE [Suspect]
     Active Substance: LEFLUNOMIDE
     Indication: Product used for unknown indication
     Dosage: 10 MG, QD
  2. LEFLUNOMIDE [Suspect]
     Active Substance: LEFLUNOMIDE
     Dosage: 20 UNK
  3. ESOMEPRAZOLE [Suspect]
     Active Substance: ESOMEPRAZOLE
     Indication: Product used for unknown indication
     Dosage: 40 MG, QD
     Route: 048
  4. ATORVASTATIN CALCIUM [Concomitant]
     Active Substance: ATORVASTATIN CALCIUM
     Dosage: 20 MG, QD
  5. CALCIUM CARBONATE\CHOLECALCIFEROL [Concomitant]
     Active Substance: CALCIUM CARBONATE\CHOLECALCIFEROL
  6. DILTIAZEM [Concomitant]
     Active Substance: DILTIAZEM
     Dosage: 120 MG, QD
     Route: 065
  7. FUROSEMIDE [Concomitant]
     Active Substance: FUROSEMIDE
     Dosage: 20 MG, QD
     Route: 065
  8. METFORMIN [Concomitant]
     Active Substance: METFORMIN HYDROCHLORIDE
     Dosage: 500 MG, Q8H
     Route: 065
  9. PREDNISONE [Concomitant]
     Active Substance: PREDNISONE
     Dosage: 5 MG, QD
     Route: 065
  10. RISEDRONATE SODIUM [Concomitant]
     Active Substance: RISEDRONATE SODIUM
     Dosage: 35 MG, QW
     Route: 065
  11. SOLIFENACIN [Concomitant]
     Active Substance: SOLIFENACIN
     Dosage: 10 MG, QD
     Route: 065
  12. VITAMINS NOS [Concomitant]
     Active Substance: VITAMINS
     Dosage: 1 UNK, QD
     Route: 065

REACTIONS (12)
  - Dehydration [Not Recovered/Not Resolved]
  - Electrolyte imbalance [Not Recovered/Not Resolved]
  - Fall [Not Recovered/Not Resolved]
  - Hypophosphataemia [Not Recovered/Not Resolved]
  - Loss of consciousness [Not Recovered/Not Resolved]
  - Acute kidney injury [Not Recovered/Not Resolved]
  - Haematochezia [Not Recovered/Not Resolved]
  - Hypokalaemia [Not Recovered/Not Resolved]
  - Weight decreased [Not Recovered/Not Resolved]
  - Hypomagnesaemia [Not Recovered/Not Resolved]
  - Colitis [Not Recovered/Not Resolved]
  - Diarrhoea [Not Recovered/Not Resolved]
